FAERS Safety Report 7618487-X (Version None)
Quarter: 2011Q3

REPORT INFORMATION
  Report Type: 
  Country: None (occurrence: None)
  Receive Date: 20110718
  Receipt Date: 20110704
  Transmission Date: 20111222
  Serious: Yes (Death)
  Sender: FDA-Public Use
  Company Number: CA-JNJFOC-20110512624

PATIENT
  Age: 52 Year
  Sex: Female
  Weight: 47.1 kg

DRUGS (2)
  1. REMICADE [Suspect]
     Indication: RHEUMATOID ARTHRITIS
     Route: 042
     Dates: start: 20070116
  2. REMICADE [Suspect]
     Route: 042
     Dates: end: 20110413

REACTIONS (1)
  - LUNG CANCER METASTATIC [None]
